FAERS Safety Report 11968763 (Version 1)
Quarter: 2016Q1

REPORT INFORMATION
  Report Type: Spontaneous
  Country: AT (occurrence: AT)
  Receive Date: 20160128
  Receipt Date: 20160128
  Transmission Date: 20160526
  Serious: Yes (Death, Hospitalization)
  Sender: FDA-Public Use
  Company Number: AT-ACTELION-A-CH2016-130415

PATIENT
  Age: 77 Year
  Sex: Female

DRUGS (1)
  1. TRACLEER [Suspect]
     Active Substance: BOSENTAN
     Indication: PULMONARY ARTERIAL HYPERTENSION
     Dosage: 125 MG, UNK
     Route: 048

REACTIONS (5)
  - Bedridden [Unknown]
  - Acute kidney injury [Fatal]
  - General physical health deterioration [Unknown]
  - Infection [Unknown]
  - Rectal prolapse [Unknown]
